FAERS Safety Report 5831093-2 (Version None)
Quarter: 2008Q3

REPORT INFORMATION
  Report Type: 
  Country: None (occurrence: None)
  Receive Date: 20080801
  Receipt Date: 20080401
  Transmission Date: 20090109
  Serious: No
  Sender: FDA-Public Use
  Company Number: US-BRISTOL-MYERS SQUIBB COMPANY-14134225

PATIENT
  Sex: Male
  Weight: 162 kg

DRUGS (2)
  1. COUMADIN [Suspect]
     Indication: DEEP VEIN THROMBOSIS
     Dosage: STARTED WITH 10MG IN JUL07;INCREASED TO 10MG IN JAN08 5 DAY A WK ALTER WITH 12.5MG 2 DAY A WK.
     Dates: start: 20070701
  2. TEGRETOL-XR [Concomitant]

REACTIONS (1)
  - RASH [None]
